FAERS Safety Report 9719726 (Version 2)
Quarter: 2013Q4

REPORT INFORMATION
  Report Type: Spontaneous
  Country: CN (occurrence: CN)
  Receive Date: 20131128
  Receipt Date: 20131213
  Transmission Date: 20140711
  Serious: Yes (Other)
  Sender: FDA-Public Use
  Company Number: CN-ROCHE-1307790

PATIENT
  Age: 57 Year
  Sex: Female

DRUGS (1)
  1. AVASTIN [Suspect]
     Indication: GASTROINTESTINAL CARCINOMA
     Dosage: LAST DOSE PRIOR TO  SAE 30/OCT/2013.
     Route: 042
     Dates: start: 201306

REACTIONS (3)
  - Blindness unilateral [Unknown]
  - Vitreous opacities [Unknown]
  - Retinal detachment [Unknown]
